FAERS Safety Report 8878741 (Version 1)
Quarter: 2012Q4

REPORT INFORMATION
  Report Type: 
  Country: IT (occurrence: IT)
  Receive Date: 20121026
  Receipt Date: 20121026
  Transmission Date: 20130627
  Serious: Yes (Other)
  Sender: FDA-Public Use
  Company Number: IT-TEVA-366647ISR

PATIENT
  Age: 53 Year
  Sex: Female

DRUGS (7)
  1. FLUOROURACILE [Suspect]
     Indication: BREAST NEOPLASM
     Dosage: 972 Milligram Daily; 5 g/100 ml
     Route: 042
     Dates: start: 20120823, end: 20121004
  2. FARMORUBICINA [Suspect]
     Indication: BREAST NEOPLASM
     Dosage: 146 Milligram Daily;
     Route: 042
     Dates: start: 20120823, end: 20121004
  3. CYCLOPHOSPHAMIDE [Suspect]
     Indication: BREAST NEOPLASM
     Dosage: 972 Milligram Daily;
     Route: 042
     Dates: start: 20120823, end: 20121004
  4. SOLDESAM [Concomitant]
     Indication: PREMEDICATION
  5. ONDANSETRON [Concomitant]
     Indication: PREMEDICATION
  6. ONDANSETRON [Concomitant]
  7. ONDANSETRON [Concomitant]

REACTIONS (4)
  - Erythema [Not Recovered/Not Resolved]
  - Swelling [Not Recovered/Not Resolved]
  - Skin disorder [Not Recovered/Not Resolved]
  - Injection site extravasation [Not Recovered/Not Resolved]
